FAERS Safety Report 25002088 (Version 2)
Quarter: 2025Q1

REPORT INFORMATION
  Report Type: Spontaneous
  Country: JP (occurrence: JP)
  Receive Date: 20250224
  Receipt Date: 20250305
  Transmission Date: 20250409
  Serious: Yes (Other)
  Sender: ROCHE
  Company Number: JP-ROCHE-10000188966

PATIENT
  Age: 47 Year
  Sex: Male

DRUGS (3)
  1. XOFLUZA [Suspect]
     Active Substance: BALOXAVIR MARBOXIL
     Indication: Influenza
     Dosage: 40.0 MILLIGRAM(S) (20 MILLIGRAM(S), 1 IN 12 HOUR)
     Route: 048
     Dates: start: 20250110, end: 20250110
  2. CALONAL [Concomitant]
     Active Substance: ACETAMINOPHEN
     Indication: Influenza
     Route: 048
     Dates: start: 20250110
  3. MUCOSAL [Concomitant]
     Indication: Influenza
     Route: 048
     Dates: start: 20250110

REACTIONS (2)
  - Colitis ischaemic [Recovered/Resolved]
  - Incorrect dose administered [Unknown]

NARRATIVE: CASE EVENT DATE: 20250111
